FAERS Safety Report 8614340-3 (Version None)
Quarter: 2012Q3

REPORT INFORMATION
  Report Type: 
  Country: None (occurrence: None)
  Receive Date: 20120823
  Receipt Date: 20120817
  Transmission Date: 20120928
  Serious: Yes (Other)
  Sender: FDA-Public Use
  Company Number: IT-ROXANE LABORATORIES, INC.-2012-RO-01720RO

PATIENT
  Age: 37 Year
  Sex: Male

DRUGS (3)
  1. TRIPTORELIN [Suspect]
     Indication: LYMPHANGIOLEIOMYOMATOSIS
  2. LETROZOLE [Suspect]
     Indication: LYMPHANGIOLEIOMYOMATOSIS
     Dosage: 2.5 MG
     Route: 048
  3. LETROZOLE [Suspect]

REACTIONS (7)
  - SECONDARY HYPOGONADISM [None]
  - BONE DENSITY DECREASED [None]
  - LIBIDO DECREASED [None]
  - ANXIETY [None]
  - EJACULATION FAILURE [None]
  - FLUSHING [None]
  - FATIGUE [None]
